FAERS Safety Report 20579418 (Version 6)
Quarter: 2023Q1

REPORT INFORMATION
  Report Type: Spontaneous
  Country: US (occurrence: US)
  Receive Date: 20220310
  Receipt Date: 20230209
  Transmission Date: 20230418
  Serious: No
  Sender: FDA-Public Use
  Company Number: US-PFIZER INC-202200378077

PATIENT
  Age: 70 Year
  Sex: Female

DRUGS (5)
  1. IBRANCE [Suspect]
     Active Substance: PALBOCICLIB
     Dosage: UNK
     Dates: start: 20220208
  2. IBRANCE [Suspect]
     Active Substance: PALBOCICLIB
     Dosage: 125 MG
     Dates: start: 20220301
  3. IBRANCE [Suspect]
     Active Substance: PALBOCICLIB
     Dosage: 125 MG
     Dates: start: 20220304
  4. IBRANCE [Suspect]
     Active Substance: PALBOCICLIB
     Dosage: 150 MG (ROTATING 1 WEEK OF IBRANCE 150MG WITH IBRANCE 100MG)
  5. IBRANCE [Suspect]
     Active Substance: PALBOCICLIB
     Dosage: 100 MG (ROTATING 1 WEEK OF IBRANCE 150MG WITH IBRANCE 100MG)

REACTIONS (7)
  - Fatigue [Not Recovered/Not Resolved]
  - Oesophagitis [Unknown]
  - Arthralgia [Unknown]
  - Diarrhoea [Unknown]
  - White blood cell count decreased [Unknown]
  - Somnolence [Not Recovered/Not Resolved]
  - Intentional product misuse [Unknown]

NARRATIVE: CASE EVENT DATE: 20220301
